FAERS Safety Report 24289018 (Version 1)
Quarter: 2024Q3

REPORT INFORMATION
  Report Type: Spontaneous
  Country: ES (occurrence: None)
  Receive Date: 20240906
  Receipt Date: 20240906
  Transmission Date: 20241017
  Serious: Yes (Other)
  Sender: NORMON
  Company Number: None

PATIENT
  Age: 5 Day
  Sex: Female

DRUGS (1)
  1. VANCOMYCIN [Suspect]
     Active Substance: VANCOMYCIN
     Indication: Staphylococcal bacteraemia
     Dates: start: 202406, end: 202406

REACTIONS (4)
  - Renal impairment [Recovered/Resolved]
  - Oliguria [Recovered/Resolved]
  - Oedema [Recovered/Resolved]
  - Vancomycin infusion reaction [Recovered/Resolved]

NARRATIVE: CASE EVENT DATE: 20240601
